FAERS Safety Report 11517187 (Version 1)
Quarter: 2015Q3

REPORT INFORMATION
  Report Type: Spontaneous
  Country: US (occurrence: None)
  Receive Date: 20150916
  Receipt Date: 20150916
  Transmission Date: 20151125
  Serious: Yes (Life-Threatening, Hospitalization, Disabling)
  Sender: FDA-Public Use
  Company Number: None

PATIENT
  Age: 62 Year
  Sex: Male
  Weight: 83.01 kg

DRUGS (19)
  1. SENNA [Concomitant]
     Active Substance: SENNA LEAF\SENNOSIDES\SENNOSIDES A AND B
  2. MULTIVITAMIN [Concomitant]
     Active Substance: VITAMINS
  3. SIMVASTATIN. [Concomitant]
     Active Substance: SIMVASTATIN
  4. BABY ASA [Concomitant]
     Active Substance: ASPIRIN
  5. MAGNESIUM [Concomitant]
     Active Substance: MAGNESIUM
  6. BENADRYL [Concomitant]
     Active Substance: DIPHENHYDRAMINE HYDROCHLORIDE
  7. MONOPRIL [Concomitant]
     Active Substance: FOSINOPRIL SODIUM
  8. TRICOR [Concomitant]
     Active Substance: FENOFIBRATE
  9. COLACE [Concomitant]
     Active Substance: DOCUSATE SODIUM
  10. NEXIUM [Concomitant]
     Active Substance: ESOMEPRAZOLE MAGNESIUM
  11. OXYCONTIN [Concomitant]
     Active Substance: OXYCODONE HYDROCHLORIDE
  12. TENORETIC [Concomitant]
     Active Substance: ATENOLOL\CHLORTHALIDONE
  13. OXYCODONE [Concomitant]
     Active Substance: OXYCODONE
  14. ATIVAN [Concomitant]
     Active Substance: LORAZEPAM
  15. POTASSIUM [Concomitant]
     Active Substance: POTASSIUM
  16. CALCIUM WITH D [Concomitant]
     Active Substance: CALCIUM\VITAMIN D
  17. THIAMINE. [Concomitant]
     Active Substance: THIAMINE
  18. XTANDI [Suspect]
     Active Substance: ENZALUTAMIDE
     Indication: PROSTATE CANCER
     Route: 048
     Dates: start: 20150602, end: 20150608
  19. ZOFRAN [Concomitant]
     Active Substance: ONDANSETRON HYDROCHLORIDE

REACTIONS (4)
  - Hallucination [None]
  - Dyskinesia [None]
  - Bruxism [None]
  - Encephalopathy [None]

NARRATIVE: CASE EVENT DATE: 20150630
